FAERS Safety Report 12641560 (Version 1)
Quarter: 2016Q3

REPORT INFORMATION
  Report Type: Report from Study
  Country: BR (occurrence: BR)
  Receive Date: 20160810
  Receipt Date: 20160810
  Transmission Date: 20161109
  Serious: Yes (Hospitalization, Other)
  Sender: FDA-Public Use
  Company Number: BR-ABBVIE-16K-020-1695182-00

PATIENT
  Sex: Female
  Weight: 56 kg

DRUGS (4)
  1. VITAMIN D [Concomitant]
     Active Substance: CHOLECALCIFEROL
     Indication: BONE DISORDER
     Route: 048
  2. CALCIUM [Concomitant]
     Active Substance: CALCIUM
     Indication: BONE DISORDER
     Route: 048
  3. OSTEONATE [Concomitant]
     Indication: OSTEOPOROSIS
     Route: 048
  4. HUMIRA [Suspect]
     Active Substance: ADALIMUMAB
     Indication: OSTEOPOROSIS
     Route: 058
     Dates: start: 20140806

REACTIONS (3)
  - Uterine cyst [Recovered/Resolved]
  - Body height decreased [Unknown]
  - Hernia [Recovered/Resolved]
